FAERS Safety Report 6739029-7 (Version None)
Quarter: 2010Q2

REPORT INFORMATION
  Report Type: 
  Country: None (occurrence: None)
  Receive Date: 20100524
  Receipt Date: 20100524
  Transmission Date: 20101027
  Serious: Yes (Other)
  Sender: FDA-Public Use
  Company Number: None

PATIENT
  Age: 7 Year
  Sex: Male
  Weight: 29.4838 kg

DRUGS (1)
  1. SINGULAIR [Suspect]
     Indication: ASTHMA
     Dosage: 1 X DAILY
     Dates: start: 20100510, end: 20100516

REACTIONS (16)
  - AGGRESSION [None]
  - ANGER [None]
  - APHASIA [None]
  - BLINDNESS [None]
  - COLOUR BLINDNESS ACQUIRED [None]
  - CONFUSIONAL STATE [None]
  - CONVULSION [None]
  - FLAT AFFECT [None]
  - HALLUCINATION, VISUAL [None]
  - HEADACHE [None]
  - MEMORY IMPAIRMENT [None]
  - MOTOR DYSFUNCTION [None]
  - NYSTAGMUS [None]
  - TINNITUS [None]
  - UNRESPONSIVE TO STIMULI [None]
  - VISUAL IMPAIRMENT [None]
